FAERS Safety Report 11716109 (Version 2)
Quarter: 2015Q4

REPORT INFORMATION
  Report Type: Spontaneous
  Country: US (occurrence: US)
  Receive Date: 20151104
  Receipt Date: 20151110
  Transmission Date: 20160304
  Serious: No
  Sender: FDA-Public Use
  Company Number: US-ELI_LILLY_AND_COMPANY-US201104005378

PATIENT
  Age: 68 Year
  Sex: Female

DRUGS (3)
  1. FORTEO [Suspect]
     Active Substance: TERIPARATIDE
     Dosage: 20 UG, QD
  2. FORTEO [Suspect]
     Active Substance: TERIPARATIDE
     Indication: OSTEOPOROSIS
     Dosage: 20 UG, QD
     Dates: start: 20110411
  3. FORTEO [Suspect]
     Active Substance: TERIPARATIDE
     Dosage: 20 UG, QD

REACTIONS (18)
  - Drug dose omission [Recovered/Resolved]
  - Pain in extremity [Unknown]
  - Alopecia [Not Recovered/Not Resolved]
  - Injection site bruising [Not Recovered/Not Resolved]
  - Heart rate increased [Not Recovered/Not Resolved]
  - Abdominal pain upper [Unknown]
  - Chest pain [Unknown]
  - Headache [Unknown]
  - Muscular weakness [Unknown]
  - Colitis ulcerative [Unknown]
  - Musculoskeletal chest pain [Unknown]
  - Bone pain [Unknown]
  - Hair growth abnormal [Unknown]
  - Injection site pain [Unknown]
  - Muscle spasms [Unknown]
  - Feeling abnormal [Unknown]
  - Injection site erythema [Not Recovered/Not Resolved]
  - Erythema [Unknown]

NARRATIVE: CASE EVENT DATE: 2011
